FAERS Safety Report 7594768-3 (Version None)
Quarter: 2011Q3

REPORT INFORMATION
  Report Type: 
  Country: None (occurrence: None)
  Receive Date: 20110707
  Receipt Date: 20110627
  Transmission Date: 20111222
  Serious: Yes (Hospitalization)
  Sender: FDA-Public Use
  Company Number: BR-US-EMD SERONO, INC.-7057941

PATIENT
  Sex: Male

DRUGS (7)
  1. RETEMIC [Concomitant]
  2. BACLOFEN [Concomitant]
  3. MANTIDAN [Concomitant]
  4. FLUOXETINE HCL [Concomitant]
  5. SINVASTATINE [Concomitant]
  6. SOMALGIN [Concomitant]
  7. REBIF [Suspect]
     Indication: RELAPSING-REMITTING MULTIPLE SCLEROSIS
     Dates: start: 19990401

REACTIONS (6)
  - GAIT DISTURBANCE [None]
  - MUSCULAR WEAKNESS [None]
  - MICTURITION URGENCY [None]
  - VIITH NERVE PARALYSIS [None]
  - ISCHAEMIC STROKE [None]
  - EMOTIONAL DISORDER [None]
